FAERS Safety Report 14692655 (Version 4)
Quarter: 2018Q2

REPORT INFORMATION
  Report Type: Report from Study
  Country: US (occurrence: US)
  Receive Date: 20180329
  Receipt Date: 20180525
  Transmission Date: 20180711
  Serious: Yes (Hospitalization, Other)
  Sender: FDA-Public Use
  Company Number: US-GILEAD-2017-0309589

PATIENT
  Age: 44 Year
  Sex: Male

DRUGS (6)
  1. ORENITRAM [Suspect]
     Active Substance: TREPROSTINIL
     Indication: PULMONARY ARTERIAL HYPERTENSION
     Dosage: 3 MG, TID
     Route: 048
     Dates: start: 201708
  2. ORENITRAM [Suspect]
     Active Substance: TREPROSTINIL
     Dosage: 5 MG, TID
     Route: 048
     Dates: start: 20171020
  3. ADCIRCA [Suspect]
     Active Substance: TADALAFIL
     Indication: PULMONARY ARTERIAL HYPERTENSION
     Dosage: 20 MG, BID
     Route: 065
     Dates: start: 201607, end: 20180129
  4. AMBRISENTAN [Suspect]
     Active Substance: AMBRISENTAN
     Indication: HIV INFECTION
  5. ADCIRCA [Suspect]
     Active Substance: TADALAFIL
     Dosage: 40 MG, QD
     Route: 065
     Dates: start: 20171129, end: 20180502
  6. AMBRISENTAN [Suspect]
     Active Substance: AMBRISENTAN
     Indication: PULMONARY ARTERIAL HYPERTENSION
     Dosage: 10 MG, QD
     Route: 065
     Dates: start: 20160718

REACTIONS (16)
  - Irritability [Not Recovered/Not Resolved]
  - Diarrhoea [Recovered/Resolved]
  - Eye pain [Unknown]
  - Dyspnoea [Not Recovered/Not Resolved]
  - Hyperacusis [Unknown]
  - Treatment noncompliance [Unknown]
  - Headache [Unknown]
  - Feeling abnormal [Unknown]
  - Discomfort [Unknown]
  - Pain in jaw [Unknown]
  - Chest pain [Unknown]
  - Pain in extremity [Unknown]
  - Flushing [Unknown]
  - Myocardial infarction [Unknown]
  - Nausea [Unknown]
  - Respiration abnormal [Not Recovered/Not Resolved]

NARRATIVE: CASE EVENT DATE: 20171201
